FAERS Safety Report 17018565 (Version 2)
Quarter: 2019Q4

REPORT INFORMATION
  Report Type: Spontaneous
  Country: BR (occurrence: BR)
  Receive Date: 20191111
  Receipt Date: 20191113
  Transmission Date: 20200122
  Serious: Yes (Other)
  Sender: FDA-Public Use
  Company Number: NVSC2019BR027950

PATIENT
  Age: 73 Year
  Sex: Male

DRUGS (2)
  1. TRILEPTAL [Suspect]
     Active Substance: OXCARBAZEPINE
     Indication: CEREBRAL DISORDER
     Dosage: 2 DF, QD (1 TABLET IN MORNING AND ONE TABLET IN EVENING)
     Route: 048
  2. TRILEPTAL [Suspect]
     Active Substance: OXCARBAZEPINE
     Indication: SEIZURE
     Dosage: 0.5 DF, BID
     Route: 048

REACTIONS (10)
  - Haemorrhage [Unknown]
  - Peripheral swelling [Unknown]
  - Product use in unapproved indication [Unknown]
  - Pain in extremity [Unknown]
  - Fall [Unknown]
  - Gait disturbance [Unknown]
  - Arthralgia [Unknown]
  - Neuropathy peripheral [Unknown]
  - Injury [Unknown]
  - Wrong technique in product usage process [Unknown]
